FAERS Safety Report 14693347 (Version 1)
Quarter: 2018Q1

REPORT INFORMATION
  Report Type: Spontaneous
  Country: US (occurrence: US)
  Receive Date: 20180329
  Receipt Date: 20180329
  Transmission Date: 20180509
  Serious: Yes (Other)
  Sender: FDA-Public Use
  Company Number: US-009507513-1803USA010702

PATIENT
  Age: 85 Year
  Sex: Male

DRUGS (3)
  1. LOSARTAN POTASSIUM. [Concomitant]
     Active Substance: LOSARTAN POTASSIUM
  2. AMLODIPINE [Concomitant]
     Active Substance: AMLODIPINE BESYLATE
  3. BCG LIVE [Suspect]
     Active Substance: BACILLUS CALMETTE-GUERIN SUBSTRAIN TICE LIVE ANTIGEN
     Indication: BLADDER CANCER
     Dosage: UNK
     Dates: start: 2017

REACTIONS (6)
  - Drug ineffective [Unknown]
  - Chondropathy [Unknown]
  - Urostomy [Unknown]
  - Metastases to lung [Unknown]
  - Metastases to kidney [Unknown]
  - Bladder operation [Unknown]

NARRATIVE: CASE EVENT DATE: 20180125
